FAERS Safety Report 11797113 (Version 2)
Quarter: 2016Q2

REPORT INFORMATION
  Report Type: Spontaneous
  Country: US (occurrence: US)
  Receive Date: 20151203
  Receipt Date: 20160406
  Transmission Date: 20160815
  Serious: No
  Sender: FDA-Public Use
  Company Number: US-ACTELION PHARMACEUTICALS US, INC.-A-US2015-126123

PATIENT
  Age: 61 Year
  Sex: Female

DRUGS (4)
  1. TYVASO [Concomitant]
     Active Substance: TREPROSTINIL
     Dosage: 9 PUFF, QID
     Dates: start: 201509
  2. LASIX [Concomitant]
     Active Substance: FUROSEMIDE
  3. OPSUMIT [Suspect]
     Active Substance: MACITENTAN
     Indication: PULMONARY ARTERIAL HYPERTENSION
     Dosage: 10 MG, QD
     Route: 048
     Dates: start: 20140310
  4. ADCIRCA [Concomitant]
     Active Substance: TADALAFIL

REACTIONS (11)
  - Metamorphopsia [Unknown]
  - Fluid retention [Unknown]
  - Oedema [Unknown]
  - Periorbital oedema [Unknown]
  - Cough [Unknown]
  - Bronchitis [Unknown]
  - Pyrexia [Unknown]
  - Condition aggravated [Unknown]
  - Headache [Unknown]
  - Dyspnoea exertional [Unknown]
  - Osteoarthritis [Unknown]
